FAERS Safety Report 5616256-3 (Version None)
Quarter: 2008Q1

REPORT INFORMATION
  Report Type: 
  Country: None (occurrence: None)
  Receive Date: 20080204
  Receipt Date: 20080125
  Transmission Date: 20080703
  Serious: Yes (Other)
  Sender: FDA-Public Use
  Company Number: SPV1-2008-00157

PATIENT
  Age: 10 Year
  Sex: Female
  Weight: 34.9 kg

DRUGS (1)
  1. DAYTRANA [Suspect]
     Indication: ATTENTION DEFICIT/HYPERACTIVITY DISORDER
     Dosage: 15 MG, 1X/DAY:QD, TRANSDERMAL
     Route: 062
     Dates: start: 20060901

REACTIONS (4)
  - ANKLE FRACTURE [None]
  - CLAVICLE FRACTURE [None]
  - DRUG INEFFECTIVE [None]
  - OSTEOMYELITIS [None]
